FAERS Safety Report 25395338 (Version 6)
Quarter: 2025Q4

REPORT INFORMATION
  Report Type: Spontaneous
  Country: US (occurrence: US)
  Receive Date: 20250604
  Receipt Date: 20251027
  Transmission Date: 20260118
  Serious: No
  Sender: APOTEX
  Company Number: US-APOTEX-2025AP007860

PATIENT
  Sex: Male

DRUGS (2)
  1. DESMOPRESSIN ACETATE [Suspect]
     Active Substance: DESMOPRESSIN ACETATE
     Indication: Product used for unknown indication
     Dosage: 1 DOSAGE FORM, Q.H.S.
     Route: 065
  2. DESMOPRESSIN ACETATE [Suspect]
     Active Substance: DESMOPRESSIN ACETATE
     Dosage: 1 DOSAGE FORM, Q.H.S.
     Route: 065

REACTIONS (5)
  - Incorrect dose administered by device [Unknown]
  - Product packaging quantity issue [Unknown]
  - Product use issue [Unknown]
  - Product delivery mechanism issue [Unknown]
  - Device failure [Unknown]
